FAERS Safety Report 8153311-0 (Version None)
Quarter: 2012Q1

REPORT INFORMATION
  Report Type: 
  Country: None (occurrence: None)
  Receive Date: 20120221
  Receipt Date: 20120206
  Transmission Date: 20120608
  Serious: Yes (Other)
  Sender: FDA-Public Use
  Company Number: US-ROCHE-1037944

PATIENT
  Sex: Male

DRUGS (9)
  1. METOCLOPRAMIDE [Concomitant]
     Route: 048
     Dates: start: 20111020
  2. DIAZEPAM [Concomitant]
     Route: 048
     Dates: start: 20111020
  3. AMLODIPINE [Concomitant]
     Route: 048
     Dates: start: 20110916, end: 20111120
  4. PSYLLIUM [Concomitant]
     Route: 048
     Dates: start: 20110916
  5. CICLOPIROX [Concomitant]
     Dosage: 1 APPLICATION
     Dates: start: 20111020
  6. VEMURAFENIB [Suspect]
     Indication: THYROID CANCER
     Dosage: LAST DOSE PRIOR TO EVENT: 18/01/2012
     Route: 048
     Dates: start: 20111027
  7. LEVOTHYROXINE SODIUM [Concomitant]
     Route: 048
     Dates: start: 20100305
  8. AMLODIPINE [Concomitant]
     Dates: start: 20111121
  9. AMMONIUM LACTATE [Concomitant]
     Dosage: 1 APPLICATION
     Dates: start: 20111020

REACTIONS (1)
  - NEOPLASM [None]
